FAERS Safety Report 14923639 (Version 5)
Quarter: 2018Q3

REPORT INFORMATION
  Report Type: Spontaneous
  Country: CA (occurrence: CA)
  Receive Date: 20180522
  Receipt Date: 20180823
  Transmission Date: 20181010
  Serious: Yes (Hospitalization, Other)
  Sender: FDA-Public Use
  Company Number: CA-PFIZER INC-2018200723

PATIENT
  Age: 59 Year
  Sex: Male
  Weight: 81.63 kg

DRUGS (9)
  1. REVATIO [Suspect]
     Active Substance: SILDENAFIL CITRATE
     Indication: PULMONARY ARTERIAL HYPERTENSION
     Dosage: 20 MG, THREE TIMES A DAY
     Route: 048
     Dates: start: 20180510
  2. ATORVASTATIN [Concomitant]
     Active Substance: ATORVASTATIN
     Dosage: UNK
  3. SPIRONOLACTONE. [Concomitant]
     Active Substance: SPIRONOLACTONE
     Dosage: UNK
  4. RIVAROXABAN [Concomitant]
     Active Substance: RIVAROXABAN
     Dosage: UNK
  5. FE /00023514/ [Concomitant]
     Dosage: UNK
  6. DOCUSATE SODIUM. [Concomitant]
     Active Substance: DOCUSATE SODIUM
     Dosage: UNK
  7. BISOPROLOL [Concomitant]
     Active Substance: BISOPROLOL
     Dosage: UNK
  8. CITALOPRAM [Concomitant]
     Active Substance: CITALOPRAM HYDROBROMIDE
     Dosage: UNK
  9. TRACLEER [Concomitant]
     Active Substance: BOSENTAN
     Dosage: UNK

REACTIONS (11)
  - Dyspnoea [Recovered/Resolved]
  - Pneumonia [Unknown]
  - Diarrhoea [Recovered/Resolved]
  - Aortic aneurysm [Not Recovered/Not Resolved]
  - Lymphadenopathy [Not Recovered/Not Resolved]
  - Gastrooesophageal reflux disease [Unknown]
  - Hot flush [Recovered/Resolved]
  - Night sweats [Recovered/Resolved]
  - Restless legs syndrome [Not Recovered/Not Resolved]
  - Condition aggravated [Unknown]
  - Dyspepsia [Unknown]

NARRATIVE: CASE EVENT DATE: 2018
